FAERS Safety Report 14744714 (Version 1)
Quarter: 2018Q2

REPORT INFORMATION
  Report Type: Spontaneous
  Country: US (occurrence: US)
  Receive Date: 20180411
  Receipt Date: 20180411
  Transmission Date: 20180711
  Serious: No
  Sender: FDA-Public Use
  Company Number: US-009507513-1804USA002801

PATIENT
  Age: 37 Year
  Sex: Female

DRUGS (3)
  1. AMOXICILLIN. [Concomitant]
     Active Substance: AMOXICILLIN
     Indication: SINUSITIS
     Dosage: UNK, 7 DAY COURSE
  2. PRINIVIL [Suspect]
     Active Substance: LISINOPRIL
     Indication: HYPERTENSION
     Dosage: UNK
     Route: 048
  3. ESOMEPRAZOLE [Concomitant]
     Active Substance: ESOMEPRAZOLE
     Indication: DYSPEPSIA
     Dosage: 20 MG, DAILY, FOR 2 WEEKS

REACTIONS (2)
  - Blood pressure inadequately controlled [Unknown]
  - Blood pressure systolic decreased [Unknown]
